FAERS Safety Report 12162168 (Version 2)
Quarter: 2016Q1

REPORT INFORMATION
  Report Type: Spontaneous
  Country: US (occurrence: US)
  Receive Date: 20160309
  Receipt Date: 20160314
  Transmission Date: 20160526
  Serious: No
  Sender: FDA-Public Use
  Company Number: US-009507513-1602USA008351

PATIENT
  Age: 3 Year
  Sex: Male

DRUGS (8)
  1. EMEND [Suspect]
     Active Substance: APREPITANT
     Indication: NAUSEA
     Dosage: 40 MG ONE TIME A DAY
     Route: 048
     Dates: start: 201512
  2. PROGRAF [Concomitant]
     Active Substance: TACROLIMUS\TACROLIMUS ANHYDROUS
  3. PREDNISONE. [Concomitant]
     Active Substance: PREDNISONE
     Route: 048
  4. CELLCEPT [Concomitant]
     Active Substance: MYCOPHENOLATE MOFETIL\MYCOPHENOLATE MOFETIL HYDROCHLORIDE
  5. DILTIAZEM HYDROCHLORIDE. [Concomitant]
     Active Substance: DILTIAZEM HYDROCHLORIDE
     Route: 048
  6. NYSTATIN. [Concomitant]
     Active Substance: NYSTATIN
  7. EMEND [Suspect]
     Active Substance: APREPITANT
     Indication: VOMITING
     Dosage: UNK
     Route: 048
     Dates: start: 201509, end: 201509
  8. ORTHOCLONE OKT3 [Concomitant]
     Active Substance: MUROMONAB-CD3

REACTIONS (3)
  - Off label use [Unknown]
  - Nausea [Unknown]
  - Vomiting [Unknown]

NARRATIVE: CASE EVENT DATE: 201509
